FAERS Safety Report 11740431 (Version 2)
Quarter: 2015Q4

REPORT INFORMATION
  Report Type: Spontaneous
  Country: US (occurrence: US)
  Receive Date: 20151110
  Receipt Date: 20151120
  Transmission Date: 20160304
  Serious: No
  Sender: FDA-Public Use
  Company Number: US-ELI_LILLY_AND_COMPANY-US201205009588

PATIENT
  Sex: Female

DRUGS (7)
  1. FORTEO [Suspect]
     Active Substance: TERIPARATIDE
     Dosage: 20 UG, QD
  2. FORTEO [Suspect]
     Active Substance: TERIPARATIDE
     Indication: OSTEOPOROSIS
     Dosage: 20 UG, QD
     Dates: start: 20120103
  3. FUROSEMIDE. [Concomitant]
     Active Substance: FUROSEMIDE
  4. FORTEO [Suspect]
     Active Substance: TERIPARATIDE
     Dosage: 20 UG, QD
  5. CALCIUM [Concomitant]
     Active Substance: CALCIUM
  6. FORTEO [Suspect]
     Active Substance: TERIPARATIDE
     Dosage: 20 UG, QD
  7. DIGOXIN. [Concomitant]
     Active Substance: DIGOXIN

REACTIONS (14)
  - Blood calcium increased [Unknown]
  - Nausea [Unknown]
  - Diarrhoea [Unknown]
  - Gastrointestinal disorder [Unknown]
  - Vomiting [Unknown]
  - Back disorder [Unknown]
  - Constipation [Unknown]
  - Arthralgia [Recovering/Resolving]
  - Decreased activity [Unknown]
  - Pain [Unknown]
  - Asthenia [Unknown]
  - Osteoporosis [Unknown]
  - Pain in extremity [Unknown]
  - Dizziness [Unknown]
